APPROVED DRUG PRODUCT: NALTREXONE
Active Ingredient: NALTREXONE
Strength: 380MG/VIAL
Dosage Form/Route: FOR SUSPENSION, EXTENDED RELEASE;INTRAMUSCULAR
Application: A213195 | Product #001
Applicant: TEVA PHARMACEUTICALS USA INC
Approved: Jul 6, 2023 | RLD: No | RS: No | Type: DISCN